FAERS Safety Report 8537503 (Version 2)
Quarter: 2014Q1

REPORT INFORMATION
  Report Type: Report from Study
  Country: MX (occurrence: MX)
  Receive Date: 20120430
  Receipt Date: 20140326
  Transmission Date: 20141002
  Serious: Yes (Death)
  Sender: FDA-Public Use
  Company Number: PHHY2012MX035695

PATIENT
  Age: 61 Year
  Sex: Male

DRUGS (1)
  1. CO-DIOVAN [Suspect]
     Indication: HYPERTENSION
     Dosage: 1 DF, DAILY (160 MG VALS AND 12.5 MG HYDRO)
     Route: 048

REACTIONS (2)
  - Septic shock [Fatal]
  - Diabetes mellitus [Fatal]
